FAERS Safety Report 15643858 (Version 1)
Quarter: 2018Q4

REPORT INFORMATION
  Report Type: Spontaneous
  Country: US (occurrence: US)
  Receive Date: 20181121
  Receipt Date: 20181121
  Transmission Date: 20190205
  Serious: No
  Sender: FDA-Public Use
  Company Number: US-BAYER-2018-215819

PATIENT
  Age: 26 Year
  Sex: Female

DRUGS (4)
  1. BETASERON [Suspect]
     Active Substance: INTERFERON BETA-1B
     Indication: MULTIPLE SCLEROSIS
     Dosage: 0.125 MG, QOD, 3-4 WEEK
  2. BETASERON [Suspect]
     Active Substance: INTERFERON BETA-1B
     Indication: MULTIPLE SCLEROSIS
     Dosage: 0.062 MG, QOD, 1-2 WEEK
  3. BETASERON [Suspect]
     Active Substance: INTERFERON BETA-1B
     Indication: MULTIPLE SCLEROSIS
     Dosage: 0.25 MG, QOD
  4. BETASERON [Suspect]
     Active Substance: INTERFERON BETA-1B
     Indication: MULTIPLE SCLEROSIS
     Dosage: 0.187 MG, QOD, 5-6 WEEK

REACTIONS (1)
  - Influenza like illness [None]
